FAERS Safety Report 4920801-0 (Version None)
Quarter: 2006Q1

REPORT INFORMATION
  Report Type: 
  Country: None (occurrence: None)
  Receive Date: 20060217
  Receipt Date: 20060203
  Transmission Date: 20060701
  Serious: Yes (Hospitalization)
  Sender: FDA-Public Use
  Company Number: 02100-USA-06-0003

PATIENT
  Age: 90 Year
  Sex: Female
  Weight: 56.6996 kg

DRUGS (11)
  1. PLETAL [Suspect]
  2. CELEBREX [Suspect]
     Dates: start: 20000401
  3. FOLIC ACID [Concomitant]
  4. NORVASC [Concomitant]
  5. SYNTHROID [Concomitant]
  6. ASPIRIN [Concomitant]
  7. MULTIVITAMIN [Concomitant]
  8. NAMENDA [Concomitant]
  9. ACIPHEX [Concomitant]
  10. DITROPAN XL [Concomitant]
  11. PREMARIN [Concomitant]

REACTIONS (8)
  - APHAGIA [None]
  - ARTHRALGIA [None]
  - DYSPHAGIA [None]
  - MALAISE [None]
  - PAIN IN EXTREMITY [None]
  - RED BLOOD CELL SEDIMENTATION RATE ABNORMAL [None]
  - TEMPORAL ARTERITIS [None]
  - TRISMUS [None]
